FAERS Safety Report 20532255 (Version 2)
Quarter: 2022Q2

REPORT INFORMATION
  Report Type: Report from Study
  Country: IN (occurrence: IN)
  Receive Date: 20220301
  Receipt Date: 20220513
  Transmission Date: 20220721
  Serious: Yes (Other)
  Sender: FDA-Public Use
  Company Number: IN-NOVARTISPH-NVSC2022IN046306

PATIENT
  Age: 52 Year
  Sex: Female

DRUGS (7)
  1. SECUKINUMAB [Suspect]
     Active Substance: SECUKINUMAB
     Indication: Psoriasis
     Dosage: 150 MG, QMO (VIAL)
     Route: 058
  2. SECUKINUMAB [Suspect]
     Active Substance: SECUKINUMAB
     Indication: Psoriatic arthropathy
     Dosage: 150 MG, QMO
     Route: 058
     Dates: start: 20210125
  3. SECUKINUMAB [Suspect]
     Active Substance: SECUKINUMAB
     Indication: Ankylosing spondylitis
     Dosage: 150 MG, QMO
     Route: 058
     Dates: start: 20211201
  4. SECUKINUMAB [Suspect]
     Active Substance: SECUKINUMAB
     Dosage: 150 MG, QMO
     Route: 058
     Dates: start: 20220116
  5. SECUKINUMAB [Suspect]
     Active Substance: SECUKINUMAB
     Dosage: 150 MG, QMO
     Route: 058
     Dates: start: 20220223
  6. SECUKINUMAB [Suspect]
     Active Substance: SECUKINUMAB
     Dosage: 150 MG, Q2W (VIAL)
     Route: 058
     Dates: start: 20220506
  7. NAPROSYN [Concomitant]
     Active Substance: NAPROXEN
     Indication: Pain
     Dosage: UNK
     Route: 065

REACTIONS (4)
  - Hypertension [Unknown]
  - Arthralgia [Unknown]
  - Product use issue [Unknown]
  - Product prescribing error [Unknown]

NARRATIVE: CASE EVENT DATE: 20220506
